FAERS Safety Report 23688227 (Version 1)
Quarter: 2024Q1

REPORT INFORMATION
  Report Type: Spontaneous
  Country: GB (occurrence: GB)
  Receive Date: 20240329
  Receipt Date: 20240329
  Transmission Date: 20240410
  Serious: Yes (Life-Threatening, Hospitalization, Other)
  Sender: FDA-Public Use
  Company Number: GB-ROCHE-3433029

PATIENT
  Age: 63 Year
  Sex: Male
  Weight: 80.5 kg

DRUGS (14)
  1. LENALIDOMIDE [Suspect]
     Active Substance: LENALIDOMIDE
     Indication: Follicular lymphoma
     Dosage: DAYS 1 TO 21 FOR 12 CYCLES
     Route: 048
     Dates: start: 20230712
  2. LENALIDOMIDE [Suspect]
     Active Substance: LENALIDOMIDE
     Dosage: MOST RECENT DOSE OF LENALIDOMIDE PRIOR TO SAE (FIRST EPISODE) WAS ON 30/MAY/2023; ;
     Route: 048
  3. LENALIDOMIDE [Suspect]
     Active Substance: LENALIDOMIDE
     Dosage: DAYS 1 TO 21 FOR 12 CYCLESON 19/SEP/2023, LAST DOSE OF LENALIDOMIDE PRIOR TO THE SAES WAS GIVEN.
     Route: 048
     Dates: start: 20230315
  4. LENALIDOMIDE [Suspect]
     Active Substance: LENALIDOMIDE
     Dosage: MOST RECENT DOSE OF LENALIDOMIDE PRIOR TO SAE (SECOND EPISODE) WAS ON 27/JUN/2023.; ;
     Route: 048
  5. LENALIDOMIDE [Suspect]
     Active Substance: LENALIDOMIDE
     Dosage: DAYS 1 TO 21 FOR 12 CYCLES
     Route: 048
     Dates: start: 20230614
  6. RITUXIMAB [Suspect]
     Active Substance: RITUXIMAB
     Indication: Follicular lymphoma
     Dosage: MOST RECENT DOSE OF RITUXIMAB PRIOR TO SAE (FIRST AND SECOND EPISODE) WAS ON 10/MAY/2023.; ;
     Route: 042
  7. RITUXIMAB [Suspect]
     Active Substance: RITUXIMAB
     Dosage: FOR 5 CYCLES;
     Route: 041
     Dates: start: 20230705
  8. RITUXIMAB [Suspect]
     Active Substance: RITUXIMAB
     Dosage: FOR 5 CYCLES;
     Route: 041
     Dates: start: 20230316
  9. TAFASITAMAB [Suspect]
     Active Substance: TAFASITAMAB
     Indication: Follicular lymphoma
     Dosage: MOST RECENT DOSE OF INCMOR00208/PLACEBO PRIOR TO SAE (FIRST EPISODE) WAS ON 31/MAY/2023; ;
     Route: 042
  10. TAFASITAMAB [Suspect]
     Active Substance: TAFASITAMAB
     Route: 042
     Dates: start: 20230621
  11. TAFASITAMAB [Suspect]
     Active Substance: TAFASITAMAB
     Dosage: FOR 12 CYCLES WEEKLY THE FIRST 3 CYCLES AND Q2W.ON 13/SEP/2023, LAST DOSE OF INCMOR00208/PLACEBO...
     Route: 042
     Dates: start: 20230315
  12. TAFASITAMAB [Suspect]
     Active Substance: TAFASITAMAB
     Route: 042
     Dates: start: 20230719
  13. PEGFILGRASTIM [Concomitant]
     Active Substance: PEGFILGRASTIM
     Indication: Product used for unknown indication
     Dosage: UNK
     Route: 058
     Dates: start: 20230703
  14. PEGFILGRASTIM [Concomitant]
     Active Substance: PEGFILGRASTIM
     Route: 058
     Dates: start: 20230607

REACTIONS (2)
  - Neutrophil count decreased [Unknown]
  - Pneumonia [Unknown]

NARRATIVE: CASE EVENT DATE: 20230605
